FAERS Safety Report 7860418-1 (Version None)
Quarter: 2011Q4

REPORT INFORMATION
  Report Type: 
  Country: None (occurrence: None)
  Receive Date: 20111027
  Receipt Date: 20111020
  Transmission Date: 20120403
  Serious: Yes (Life-Threatening, Hospitalization, Other)
  Sender: FDA-Public Use
  Company Number: PHHY2011HU90983

PATIENT
  Age: 25 Year
  Sex: Female

DRUGS (1)
  1. EXFORGE [Suspect]
     Dosage: 4480 MG VALS AND 280 MG AMLO, UNK

REACTIONS (20)
  - ENDOCARDITIS [None]
  - PULMONARY EMBOLISM [None]
  - ACUTE RESPIRATORY DISTRESS SYNDROME [None]
  - SEPSIS [None]
  - INFECTION [None]
  - DEPRESSION [None]
  - MECHANICAL VENTILATION COMPLICATION [None]
  - ANOREXIA NERVOSA [None]
  - OVERDOSE [None]
  - RESPIRATORY FAILURE [None]
  - COMA SCALE ABNORMAL [None]
  - CONVULSION [None]
  - OXYGEN SATURATION DECREASED [None]
  - TRACHEO-OESOPHAGEAL FISTULA [None]
  - DYSPNOEA [None]
  - SUICIDE ATTEMPT [None]
  - FOOD AVERSION [None]
  - BLOOD PRESSURE SYSTOLIC DECREASED [None]
  - LACUNAR INFARCTION [None]
  - EPILEPSY [None]
